FAERS Safety Report 8844134 (Version 1)
Quarter: 2012Q4

REPORT INFORMATION
  Report Type: 
  Country: US (occurrence: US)
  Receive Date: 20121016
  Receipt Date: 20121016
  Transmission Date: 20130627
  Serious: Yes (Hospitalization, Other)
  Sender: FDA-Public Use
  Company Number: US-BAYER-2012-104800

PATIENT
  Sex: Female

DRUGS (2)
  1. BAYER ASPIRIN REGIMEN ADULT LOW STRENGTH [Suspect]
  2. PLAVIX [Suspect]
     Dosage: UNK
     Dates: start: 2009

REACTIONS (5)
  - Gingival bleeding [None]
  - Lip swelling [None]
  - Cheilitis [None]
  - Headache [None]
  - Mouth haemorrhage [None]
